APPROVED DRUG PRODUCT: CALCITONIN-SALMON
Active Ingredient: CALCITONIN SALMON
Strength: 200 IU/ML
Dosage Form/Route: INJECTABLE;INJECTION
Application: A209358 | Product #001 | TE Code: AP
Applicant: PH HEALTH LTD
Approved: Nov 10, 2021 | RLD: No | RS: No | Type: RX